FAERS Safety Report 5415294-3 (Version None)
Quarter: 2007Q3

REPORT INFORMATION
  Report Type: 
  Country: None (occurrence: None)
  Receive Date: 20070815
  Receipt Date: 20070810
  Transmission Date: 20080115
  Serious: Yes (Death)
  Sender: FDA-Public Use
  Company Number: PHBS2007JP08772

PATIENT
  Age: 39 Year
  Sex: Female

DRUGS (2)
  1. CYCLOSPORINE [Suspect]
     Indication: APLASTIC ANAEMIA
     Dosage: 6 MG/KG/DAY
     Route: 065
     Dates: start: 20030101, end: 20030201
  2. PREDNISOLONE [Suspect]
     Indication: APLASTIC ANAEMIA
     Dosage: 1 MG/KG/DAY
     Route: 065
     Dates: start: 20021201

REACTIONS (6)
  - BONE MARROW FAILURE [None]
  - GASTROINTESTINAL HAEMORRHAGE [None]
  - HODGKIN'S DISEASE RECURRENT [None]
  - LYMPHADENOPATHY [None]
  - PANCYTOPENIA [None]
  - THERAPEUTIC RESPONSE DECREASED [None]
